FAERS Safety Report 5090008-8 (Version None)
Quarter: 2006Q3

REPORT INFORMATION
  Report Type: 
  Country: None (occurrence: None)
  Receive Date: 20060731
  Receipt Date: 20060607
  Transmission Date: 20061208
  Serious: Yes (Hospitalization)
  Sender: FDA-Public Use
  Company Number: 200612958BWH

PATIENT
  Age: 34 Year
  Sex: Male

DRUGS (2)
  1. AVELOX [Suspect]
     Indication: BRONCHITIS
     Dosage: ONCE, ORAL
     Route: 048
  2. FLU SHOT [Concomitant]

REACTIONS (2)
  - ANAPHYLACTIC SHOCK [None]
  - RESPIRATORY DISORDER [None]
